FAERS Safety Report 9504754 (Version 1)
Quarter: 2013Q1

REPORT INFORMATION
  Report Type: Spontaneous
  Country: DE (occurrence: None)
  Receive Date: 20130225
  Receipt Date: 20130225
  Transmission Date: 20140127
  Serious: Yes (Other)
  Sender: FDA-Public Use
  Company Number: 2012-514

PATIENT
  Age: 49 Year
  Sex: Female
  Weight: 64 kg

DRUGS (2)
  1. PRIALT (ZICONOTIDE) INTRATHECAL INFUSION [Suspect]
     Indication: NEURALGIA
     Dosage: ONCE AN HOUR
     Route: 037
     Dates: start: 20120401
  2. AMITRIPTYLIN [Suspect]

REACTIONS (2)
  - Dysuria [None]
  - Drug interaction [None]
